FAERS Safety Report 23880786 (Version 1)
Quarter: 2024Q2

REPORT INFORMATION
  Report Type: Spontaneous
  Country: US (occurrence: None)
  Receive Date: 20240521
  Receipt Date: 20240521
  Transmission Date: 20240715
  Serious: Yes (Hospitalization)
  Sender: FDA-Public Use
  Company Number: None

PATIENT
  Age: 66 Year
  Sex: Male

DRUGS (1)
  1. NAPROXEN [Suspect]
     Active Substance: NAPROXEN
     Indication: Anaemia
     Dosage: FREQUENCY : DAILY;?
     Route: 048
     Dates: start: 20230511, end: 20240315

REACTIONS (4)
  - Anaemia [None]
  - Haematochezia [None]
  - Abdominal pain upper [None]
  - Haemorrhage [None]

NARRATIVE: CASE EVENT DATE: 20240313
